FAERS Safety Report 19788136 (Version 2)
Quarter: 2022Q1

REPORT INFORMATION
  Report Type: Spontaneous
  Country: US (occurrence: US)
  Receive Date: 20210903
  Receipt Date: 20220308
  Transmission Date: 20220424
  Serious: No
  Sender: FDA-Public Use
  Company Number: US-HARMONY BIOSCIENCES-2021HMY01300

PATIENT
  Sex: Female
  Weight: 50.34 kg

DRUGS (16)
  1. WAKIX [Suspect]
     Active Substance: PITOLISANT HYDROCHLORIDE
     Indication: Narcolepsy
     Dosage: 8.9 MG, 1X/DAY, FOR 7 DAYS
     Dates: start: 2021, end: 2021
  2. WAKIX [Suspect]
     Active Substance: PITOLISANT HYDROCHLORIDE
     Dosage: 17.8 MG, 1X/DAY, FOR 14 DAYS
     Dates: start: 2021, end: 2021
  3. WAKIX [Suspect]
     Active Substance: PITOLISANT HYDROCHLORIDE
     Dosage: 35.6 MG, 1X/DAY EVERY MORNING
     Route: 048
     Dates: start: 2021, end: 2021
  4. WAKIX [Suspect]
     Active Substance: PITOLISANT HYDROCHLORIDE
     Dosage: 35.6 MG, 1X/DAY EVERY MORNING
     Route: 048
     Dates: start: 2021, end: 2021
  5. WAKIX [Suspect]
     Active Substance: PITOLISANT HYDROCHLORIDE
     Dosage: ^DECREASED DOSE^
     Dates: start: 2021, end: 20211011
  6. AZELASTINE [Suspect]
     Active Substance: AZELASTINE
     Dosage: UNK
     Dates: start: 20210620, end: 2021
  7. XYREM [Suspect]
     Active Substance: SODIUM OXYBATE
     Dosage: UNK
     Dates: end: 2021
  8. XYREM [Suspect]
     Active Substance: SODIUM OXYBATE
     Dosage: UNK
     Dates: start: 2021
  9. XYWAV [Suspect]
     Active Substance: CALCIUM OXYBATE\MAGNESIUM OXYBATE\POTASSIUM OXYBATE\SODIUM OXYBATE
     Dosage: UNK
     Dates: start: 2021, end: 2021
  10. DULOXETINE [Concomitant]
     Active Substance: DULOXETINE
  11. POTASSIUM CHLORIDE [Concomitant]
     Active Substance: POTASSIUM CHLORIDE
  12. FLUDROCORTISONE [Concomitant]
     Active Substance: FLUDROCORTISONE
  13. MIDODRINE [Concomitant]
     Active Substance: MIDODRINE
  14. ZOFRAN [Concomitant]
     Active Substance: ONDANSETRON HYDROCHLORIDE
  15. RIZATRIPTAN BENZOATE [Concomitant]
     Active Substance: RIZATRIPTAN BENZOATE
  16. TOSYMRA [Concomitant]
     Active Substance: SUMATRIPTAN

REACTIONS (6)
  - Vomiting [Recovered/Resolved]
  - Retching [Unknown]
  - Drug interaction [Recovered/Resolved]
  - Fatigue [Not Recovered/Not Resolved]
  - Drug ineffective [Recovered/Resolved]
  - Nausea [Unknown]

NARRATIVE: CASE EVENT DATE: 20210101
